FAERS Safety Report 12284649 (Version 1)
Quarter: 2016Q2

REPORT INFORMATION
  Report Type: Spontaneous
  Country: US (occurrence: US)
  Receive Date: 20160420
  Receipt Date: 20160420
  Transmission Date: 20160815
  Serious: Yes (Other)
  Sender: FDA-Public Use
  Company Number: US-ROCHE-1744332

PATIENT
  Age: 61 Year
  Sex: Female

DRUGS (1)
  1. METALYSE [Suspect]
     Active Substance: TENECTEPLASE
     Indication: PRODUCT USED FOR UNKNOWN INDICATION
     Dosage: ROUTE: 6F ANGIOJET THROMBECTOMY
     Route: 050

REACTIONS (1)
  - Compartment syndrome [Recovering/Resolving]
